FAERS Safety Report 7542527-X (Version None)
Quarter: 2011Q2

REPORT INFORMATION
  Report Type: 
  Country: None (occurrence: None)
  Receive Date: 20110606
  Receipt Date: 20110527
  Transmission Date: 20111010
  Serious: Yes (Hospitalization)
  Sender: FDA-Public Use
  Company Number: 2010SP019827

PATIENT
  Age: 42 Year
  Sex: Female
  Weight: 90.7194 kg

DRUGS (1)
  1. NUVARING [Suspect]
     Indication: CONTRACEPTION
     Dates: start: 20070901, end: 20080401

REACTIONS (6)
  - STRESS URINARY INCONTINENCE [None]
  - UTERINE ENLARGEMENT [None]
  - DEEP VEIN THROMBOSIS [None]
  - MENORRHAGIA [None]
  - PULMONARY EMBOLISM [None]
  - INJURY [None]
